FAERS Safety Report 8512682-3 (Version None)
Quarter: 2012Q3

REPORT INFORMATION
  Report Type: 
  Country: None (occurrence: None)
  Receive Date: 20120716
  Receipt Date: 20120711
  Transmission Date: 20120928
  Serious: Yes (Other)
  Sender: FDA-Public Use
  Company Number: US-PFIZER INC-2012166857

PATIENT
  Sex: Male

DRUGS (2)
  1. LYRICA [Suspect]
     Dosage: 50 MG, 4X/DAY
  2. LYRICA [Suspect]
     Dosage: 3 SOMETIMES 2 TABLETS A DAY

REACTIONS (5)
  - DEPRESSED MOOD [None]
  - FEELING DRUNK [None]
  - DISSOCIATION [None]
  - DRUG INEFFECTIVE [None]
  - CONFUSIONAL STATE [None]
